FAERS Safety Report 9463925 (Version 1)
Quarter: 2013Q3

REPORT INFORMATION
  Report Type: Spontaneous
  Country: JP (occurrence: JP)
  Receive Date: 20130819
  Receipt Date: 20130819
  Transmission Date: 20140515
  Serious: Yes (Hospitalization)
  Sender: FDA-Public Use
  Company Number: JP-JNJFOC-20130716554

PATIENT
  Age: 12 Month
  Sex: Male

DRUGS (2)
  1. INVEGA [Suspect]
     Indication: ACCIDENTAL EXPOSURE TO PRODUCT
     Route: 048
     Dates: start: 20130622, end: 20130622
  2. CLONAZEPAM [Suspect]
     Indication: ACCIDENTAL EXPOSURE TO PRODUCT
     Route: 048

REACTIONS (2)
  - Altered state of consciousness [Recovered/Resolved]
  - Accidental exposure to product by child [Unknown]
